FAERS Safety Report 8493684-2 (Version None)
Quarter: 2012Q3

REPORT INFORMATION
  Report Type: 
  Country: None (occurrence: None)
  Receive Date: 20120706
  Receipt Date: 20090423
  Transmission Date: 20120928
  Serious: Yes (Hospitalization, Other)
  Sender: FDA-Public Use
  Company Number: PHHY2009AU070555

PATIENT
  Sex: Female

DRUGS (1)
  1. AREDIA [Suspect]
     Indication: OSTEOPOROSIS
     Route: 042
     Dates: start: 20080101

REACTIONS (7)
  - PULMONARY FUNCTION TEST ABNORMAL [None]
  - MALAISE [None]
  - VIRAL INFECTION [None]
  - DIZZINESS [None]
  - CONFUSIONAL STATE [None]
  - RESPIRATORY DISORDER [None]
  - BLOOD PRESSURE FLUCTUATION [None]
